FAERS Safety Report 10708541 (Version 3)
Quarter: 2015Q1

REPORT INFORMATION
  Report Type: Spontaneous
  Country: US (occurrence: US)
  Receive Date: 20150113
  Receipt Date: 20150212
  Transmission Date: 20150721
  Serious: Yes (Hospitalization, Other)
  Sender: FDA-Public Use
  Company Number: US-009507513-1501USA000896

PATIENT
  Age: 40 Year
  Sex: Male
  Weight: 93.2 kg

DRUGS (4)
  1. TEMODAR [Suspect]
     Active Substance: TEMOZOLOMIDE
     Dosage: 170 MG, UNK
     Route: 048
     Dates: start: 20141222
  2. TEMODAR [Suspect]
     Active Substance: TEMOZOLOMIDE
     Dosage: 165 UNK, UNK
     Dates: start: 20141105, end: 20141219
  3. KEPPRA [Concomitant]
     Active Substance: LEVETIRACETAM
     Dosage: 1000 MG, BID
  4. KEPPRA [Concomitant]
     Active Substance: LEVETIRACETAM
     Dosage: 1500 MG, BID

REACTIONS (3)
  - Neoplasm progression [Recovered/Resolved]
  - Nervous system disorder [Recovered/Resolved]
  - Neoplasm swelling [Recovered/Resolved]

NARRATIVE: CASE EVENT DATE: 20141225
